FAERS Safety Report 9853674 (Version 1)
Quarter: 2014Q1

REPORT INFORMATION
  Report Type: Spontaneous
  Country: US (occurrence: US)
  Receive Date: 20140129
  Receipt Date: 20140129
  Transmission Date: 20141002
  Serious: Yes (Hospitalization)
  Sender: FDA-Public Use
  Company Number: US-B.I. PHARMACEUTICALS,INC./RIDGEFIELD-2014-BI-03257BP

PATIENT
  Age: 71 Year
  Sex: Male

DRUGS (7)
  1. PRADAXA [Suspect]
     Indication: ATRIAL FIBRILLATION
     Dosage: 300 MG
     Route: 048
     Dates: start: 201207
  2. PRADAXA [Suspect]
     Dosage: 150 MG
     Route: 048
     Dates: end: 201312
  3. METOPROLOL [Concomitant]
  4. DIGOXIN [Concomitant]
  5. POTASSIUM SUPPLIMENT [Concomitant]
  6. SIMAVATIN [Concomitant]
  7. LASIX [Concomitant]

REACTIONS (1)
  - Ischaemic stroke [Recovered/Resolved with Sequelae]
